FAERS Safety Report 17639353 (Version 3)
Quarter: 2020Q2

REPORT INFORMATION
  Report Type: Report from Study
  Country: US (occurrence: US)
  Receive Date: 20200407
  Receipt Date: 20200526
  Transmission Date: 20200713
  Serious: No
  Sender: FDA-Public Use
  Company Number: NVSC2020US089282

PATIENT
  Sex: Male

DRUGS (1)
  1. COSENTYX [Suspect]
     Active Substance: SECUKINUMAB
     Indication: PSORIASIS
     Dosage: 300 MG, QMO
     Route: 058

REACTIONS (8)
  - Body temperature decreased [Unknown]
  - Influenza [Unknown]
  - Nasopharyngitis [Unknown]
  - Asthenia [Unknown]
  - Throat irritation [Unknown]
  - Chills [Unknown]
  - Oropharyngeal pain [Unknown]
  - Fatigue [Unknown]
